FAERS Safety Report 16839864 (Version 3)
Quarter: 2019Q4

REPORT INFORMATION
  Report Type: Report from Study
  Country: DE (occurrence: DE)
  Receive Date: 20190923
  Receipt Date: 20191211
  Transmission Date: 20200122
  Serious: Yes (Life-Threatening, Hospitalization)
  Sender: FDA-Public Use
  Company Number: DE-PFIZER INC-2019407032

PATIENT
  Age: 32 Year
  Sex: Male
  Weight: 75 kg

DRUGS (3)
  1. IBUPROFEN. [Suspect]
     Active Substance: IBUPROFEN
     Dosage: ANAMNESTIC 3-4 X1 DAY
     Route: 048
  2. SKILARENCE [Suspect]
     Active Substance: DIMETHYL FUMARATE
     Indication: PSORIASIS
     Dosage: 3X2 (720 MG)
     Route: 048
     Dates: start: 20171024, end: 20190721
  3. FUMADERM [Concomitant]
     Active Substance: CALCIUM MONOETHYLFUMARATE\DIMETHYL FUMARATE\MAGNESIUM MONOETHYLFUMARATE\ZINC MONOETHYLFUMARATE
     Dosage: UNK
     Route: 048
     Dates: start: 20160406, end: 20170909

REACTIONS (1)
  - Gastric perforation [Recovered/Resolved]

NARRATIVE: CASE EVENT DATE: 20190721
